FAERS Safety Report 9345398 (Version 3)
Quarter: 2014Q1

REPORT INFORMATION
  Report Type: Spontaneous
  Country: JP (occurrence: JP)
  Receive Date: 20130613
  Receipt Date: 20140328
  Transmission Date: 20141002
  Serious: Yes (Other)
  Sender: FDA-Public Use
  Company Number: JP-B.I. PHARMACEUTICALS,INC./RIDGEFIELD-2013-BI-16793NB

PATIENT
  Age: 70 Year
  Sex: Male

DRUGS (1)
  1. PRAZAXA [Suspect]
     Indication: PRODUCT USED FOR UNKNOWN INDICATION
     Dosage: 220 MG OR 300 MG (NOT FURTHER SPECIFIED)
     Route: 048

REACTIONS (1)
  - Thrombotic cerebral infarction [Recovered/Resolved]
